FAERS Safety Report 13727472 (Version 2)
Quarter: 2018Q4

REPORT INFORMATION
  Report Type: Report from Study
  Country: None (occurrence: GB)
  Receive Date: 20170706
  Receipt Date: 20181204
  Transmission Date: 20190204
  Serious: Yes (Death, Other)
  Sender: FDA-Public Use
  Company Number: GB-ABBVIE-17K-167-2030171-00

PATIENT
  Age: 83 Year
  Sex: Female

DRUGS (2)
  1. METHOTREXATE. [Concomitant]
     Active Substance: METHOTREXATE
     Indication: RHEUMATOID ARTHRITIS
  2. HUMIRA [Suspect]
     Active Substance: ADALIMUMAB
     Indication: RHEUMATOID ARTHRITIS
     Route: 058
     Dates: start: 20040701, end: 20060410

REACTIONS (5)
  - General physical health deterioration [Fatal]
  - Weight decreased [Fatal]
  - Adenocarcinoma of colon [Fatal]
  - Metastases to liver [Fatal]
  - Anaemia [Fatal]

NARRATIVE: CASE EVENT DATE: 20160729
